FAERS Safety Report 11599054 (Version 1)
Quarter: 2015Q4

REPORT INFORMATION
  Report Type: Spontaneous
  Country: US (occurrence: US)
  Receive Date: 20151006
  Receipt Date: 20151006
  Transmission Date: 20160304
  Serious: No
  Sender: FDA-Public Use
  Company Number: US-009507513-1509USA012669

PATIENT
  Age: 35 Year
  Sex: Female

DRUGS (3)
  1. COLCHICINE. [Concomitant]
     Active Substance: COLCHICINE
     Indication: HYPER IGD SYNDROME
  2. ZOCOR [Suspect]
     Active Substance: SIMVASTATIN
     Indication: HYPER IGD SYNDROME
  3. PREDNISONE. [Concomitant]
     Active Substance: PREDNISONE
     Indication: HYPER IGD SYNDROME

REACTIONS (2)
  - Transaminases increased [Unknown]
  - Myalgia [Unknown]
